FAERS Safety Report 8137735-3 (Version None)
Quarter: 2012Q1

REPORT INFORMATION
  Report Type: 
  Country: None (occurrence: None)
  Receive Date: 20120215
  Receipt Date: 20120213
  Transmission Date: 20120608
  Serious: No
  Sender: FDA-Public Use
  Company Number: US-PFIZER INC-2012039016

PATIENT
  Sex: Female
  Weight: 95.238 kg

DRUGS (9)
  1. CELEBREX [Suspect]
     Indication: NEURALGIA
  2. SKELAXIN [Concomitant]
     Indication: MUSCLE RELAXANT THERAPY
     Dosage: UNK
  3. AMBIEN [Concomitant]
     Indication: SLEEP DISORDER
     Dosage: UNK
  4. CELEBREX [Suspect]
     Indication: INTERVERTEBRAL DISC PROTRUSION
     Dosage: 200 MG, 2X/DAY
     Route: 048
     Dates: end: 20110101
  5. OMEPRAZOLE [Concomitant]
     Indication: GASTROOESOPHAGEAL REFLUX DISEASE
     Dosage: UNK
  6. MORPHINE [Concomitant]
     Indication: BACK PAIN
     Dosage: UNK
  7. CELEBREX [Suspect]
     Indication: POSTOPERATIVE CARE
  8. LISINOPRIL AND HYDROCHLOROTHIAZIDE [Concomitant]
     Indication: HYPERTENSION
     Dosage: UNK
  9. ZOLOFT [Concomitant]
     Indication: DEPRESSION
     Dosage: UNK

REACTIONS (1)
  - BACK PAIN [None]
